FAERS Safety Report 21649263 (Version 1)
Quarter: 2022Q4

REPORT INFORMATION
  Report Type: Report from Study
  Country: US (occurrence: US)
  Receive Date: 20221128
  Receipt Date: 20221128
  Transmission Date: 20230113
  Serious: No
  Sender: FDA-Public Use
  Company Number: US-ABBVIE-4168362

PATIENT
  Sex: Female
  Weight: 73.481 kg

DRUGS (9)
  1. HUMIRA [Suspect]
     Active Substance: ADALIMUMAB
     Indication: Juvenile idiopathic arthritis
     Dosage: CITRATE FREE 40 MG
     Route: 058
     Dates: start: 20220923, end: 20221007
  2. HUMIRA [Suspect]
     Active Substance: ADALIMUMAB
     Indication: Rheumatoid arthritis
     Dosage: CITRATE FREE 40 MG? DOSE INCREASED ?START DATE -OCT 2022
     Route: 058
  3. ARAVA [Concomitant]
     Active Substance: LEFLUNOMIDE
     Indication: Product used for unknown indication
  4. PFIZER-BIONTECH COVID-19 VACCINE [Concomitant]
     Active Substance: TOZINAMERAN
     Indication: COVID-19 immunisation
     Dosage: PFIZER 1ST DOSE
     Route: 030
     Dates: start: 20210303, end: 20210303
  5. PFIZER-BIONTECH COVID-19 VACCINE [Concomitant]
     Active Substance: TOZINAMERAN
     Indication: COVID-19 immunisation
     Dosage: PFIZER 2ND DOSE
     Route: 030
     Dates: start: 20210323, end: 20210323
  6. PFIZER-BIONTECH COVID-19 VACCINE [Concomitant]
     Active Substance: TOZINAMERAN
     Indication: COVID-19 immunisation
     Dosage: PFIZER 3RD DOSE
     Route: 030
     Dates: start: 20210821, end: 20210821
  7. ANNOVERA [Concomitant]
     Active Substance: ETHINYL ESTRADIOL\SEGESTERONE ACETATE
     Indication: Product used for unknown indication
     Dosage: BIRTH CONTROL RING
  8. LEFLUNOMIDE [Concomitant]
     Active Substance: LEFLUNOMIDE
     Indication: Rheumatoid arthritis
  9. MODERNA COVID-19 VACCINE [Concomitant]
     Active Substance: ELASOMERAN
     Indication: COVID-19 immunisation
     Dosage: COVID 19 BOOSTER VACCINE MODERNA
     Route: 030
     Dates: start: 20220718, end: 20220718

REACTIONS (2)
  - Rheumatoid arthritis [Not Recovered/Not Resolved]
  - Drug ineffective [Unknown]
